FAERS Safety Report 7182780-8 (Version None)
Quarter: 2010Q4

REPORT INFORMATION
  Report Type: 
  Country: None (occurrence: None)
  Receive Date: 20101221
  Receipt Date: 20100528
  Transmission Date: 20110411
  Serious: No
  Sender: FDA-Public Use
  Company Number: US-AMGEN-TCS412408

PATIENT

DRUGS (2)
  1. ENBREL [Suspect]
     Indication: PSORIASIS
     Dosage: 50 MG, 2 TIMES/WK
     Route: 058
     Dates: start: 20100415, end: 20100513
  2. RANITIDINE [Concomitant]
     Dosage: UNK UNK, UNK
     Dates: start: 19990101

REACTIONS (3)
  - ABDOMINAL PAIN UPPER [None]
  - CHROMATURIA [None]
  - NEPHROLITHIASIS [None]
